FAERS Safety Report 8995921 (Version 1)
Quarter: 2013Q1

REPORT INFORMATION
  Report Type: Spontaneous
  Country: US (occurrence: US)
  Receive Date: 20130103
  Receipt Date: 20130103
  Transmission Date: 20140127
  Serious: Yes (Other)
  Sender: FDA-Public Use
  Company Number: US-BAYER-2012-135759

PATIENT
  Age: 56 Year
  Sex: Female
  Weight: 104 kg

DRUGS (3)
  1. ALKA-SELTZER PLUS COLD SPARKLING ORIGINAL [Suspect]
     Indication: SINUS CONGESTION
     Dosage: 2 DF, QID
     Dates: start: 20121222
  2. VITAMIN D [Concomitant]
  3. CALCIUM [Concomitant]

REACTIONS (4)
  - Swollen tongue [Not Recovered/Not Resolved]
  - Oedema peripheral [Not Recovered/Not Resolved]
  - Swelling face [Not Recovered/Not Resolved]
  - Lip swelling [Not Recovered/Not Resolved]
